FAERS Safety Report 8614821-2 (Version None)
Quarter: 2012Q3

REPORT INFORMATION
  Report Type: 
  Country: None (occurrence: None)
  Receive Date: 20120823
  Receipt Date: 20120816
  Transmission Date: 20120928
  Serious: Yes (Hospitalization)
  Sender: FDA-Public Use
  Company Number: FR-UCBSA-063751

PATIENT
  Age: 73 Year
  Sex: Female

DRUGS (10)
  1. TRANSIPEG [Concomitant]
     Dosage: TWO UNITS DAILY
     Route: 048
  2. EFFEXOR [Concomitant]
     Dosage: CONTROLLED-RELEASE TABLET 75 MG, 75 MG DAILY
     Route: 048
     Dates: start: 20120201
  3. HUMALOG [Concomitant]
     Dosage: 100 IU/ML
     Route: 058
  4. KEPPRA [Suspect]
     Indication: STATUS EPILEPTICUS
     Route: 048
     Dates: start: 20120201, end: 20120101
  5. LERCANIDIPINE [Concomitant]
     Dosage: 20 MG DAILY
     Route: 048
  6. CRESTOR [Concomitant]
     Dosage: 10 MG TABLET, TOTAL DAILY DOSE: 10 MG
  7. LEXOMIL [Concomitant]
     Dosage: 0.25 MG TABLET
     Route: 048
  8. IRBESARTAN AND HYDROCHLOROTHIAZIDE [Concomitant]
     Dosage: 300MG/12.5MG, ONE UNIT DAILY
     Route: 048
  9. ACETAMINOPHEN [Concomitant]
     Dosage: IF NEEDED
     Route: 048
  10. GLUCOPHAGE [Concomitant]
     Route: 048

REACTIONS (3)
  - CATATONIA [None]
  - PULMONARY EMBOLISM [None]
  - QUADRIPLEGIA [None]
